FAERS Safety Report 6919363-8 (Version None)
Quarter: 2010Q3

REPORT INFORMATION
  Report Type: 
  Country: None (occurrence: None)
  Receive Date: 20100811
  Receipt Date: 20100804
  Transmission Date: 20110219
  Serious: Yes (Other)
  Sender: FDA-Public Use
  Company Number: A0874756A

PATIENT
  Sex: Female
  Weight: 66 kg

DRUGS (1)
  1. FLIXONASE [Suspect]
     Indication: RHINITIS
     Dosage: 4PUFF TWICE PER DAY
     Route: 045
     Dates: start: 20100731

REACTIONS (2)
  - AGEUSIA [None]
  - ANOSMIA [None]
